FAERS Safety Report 23759450 (Version 19)
Quarter: 2024Q4

REPORT INFORMATION
  Report Type: Spontaneous
  Country: US (occurrence: US)
  Receive Date: 20240418
  Receipt Date: 20241112
  Transmission Date: 20250115
  Serious: Yes (Other)
  Sender: JOHNSON AND JOHNSON
  Company Number: US-JNJFOC-20240434717

PATIENT
  Age: 70 Year
  Sex: Female
  Weight: 56.7 kg

DRUGS (25)
  1. UPTRAVI [Suspect]
     Active Substance: SELEXIPAG
     Indication: Pulmonary arterial hypertension
     Route: 048
     Dates: end: 20240331
  2. UPTRAVI [Suspect]
     Active Substance: SELEXIPAG
     Indication: Pulmonary hypertension
     Route: 048
     Dates: start: 202107
  3. UPTRAVI [Suspect]
     Active Substance: SELEXIPAG
     Route: 048
  4. UPTRAVI [Suspect]
     Active Substance: SELEXIPAG
     Route: 048
  5. UPTRAVI [Suspect]
     Active Substance: SELEXIPAG
     Route: 048
  6. UPTRAVI [Suspect]
     Active Substance: SELEXIPAG
     Dosage: UPTRAVI 200MCG ORALLY; UPTRAVI 800 MCG ORALLY
     Route: 048
  7. UPTRAVI [Suspect]
     Active Substance: SELEXIPAG
     Route: 048
  8. TYVASO DPI [Suspect]
     Active Substance: TREPROSTINIL
     Indication: Pulmonary arterial hypertension
     Route: 055
     Dates: start: 20240304
  9. TYVASO DPI [Suspect]
     Active Substance: TREPROSTINIL
     Route: 055
     Dates: start: 2024
  10. TYVASO DPI [Suspect]
     Active Substance: TREPROSTINIL
     Route: 055
     Dates: start: 20240304, end: 202409
  11. ADEMPAS [Suspect]
     Active Substance: RIOCIGUAT
     Indication: Product used for unknown indication
     Route: 065
  12. SPIRIVA RESPIMAT [Concomitant]
     Active Substance: TIOTROPIUM BROMIDE
  13. FUROSEMIDE [Concomitant]
     Active Substance: FUROSEMIDE
  14. VITAMIN C [Concomitant]
     Active Substance: ASCORBIC ACID
  15. BREO ELLIPTA [Concomitant]
     Active Substance: FLUTICASONE FUROATE\VILANTEROL TRIFENATATE
  16. LEVALBUTEROL TARTRATE [Concomitant]
     Active Substance: LEVALBUTEROL TARTRATE
  17. POTASSIUM CHLORIDE [Concomitant]
     Active Substance: POTASSIUM CHLORIDE
  18. METOPROLOL SUCCINATE [Concomitant]
     Active Substance: METOPROLOL SUCCINATE
  19. CLONAZEPAM [Concomitant]
     Active Substance: CLONAZEPAM
  20. OXYGEN [Concomitant]
     Active Substance: OXYGEN
  21. XARELTO [Concomitant]
     Active Substance: RIVAROXABAN
  22. CALCIUM [Concomitant]
     Active Substance: CALCIUM
  23. FERROUS SULFATE [Concomitant]
     Active Substance: FERROUS SULFATE
  24. PANTOPRAZOLE SODIUM [Concomitant]
     Active Substance: PANTOPRAZOLE SODIUM
  25. DIMETHICONE\LOPERAMIDE HYDROCHLORIDE [Concomitant]
     Active Substance: DIMETHICONE\LOPERAMIDE HYDROCHLORIDE

REACTIONS (24)
  - Pulmonary arterial hypertension [Unknown]
  - Weight decreased [Not Recovered/Not Resolved]
  - Dyspnoea [Recovering/Resolving]
  - Oropharyngeal discomfort [Unknown]
  - Diarrhoea [Recovering/Resolving]
  - Abdominal pain upper [Unknown]
  - Cough [Unknown]
  - Throat irritation [Unknown]
  - Wheezing [Unknown]
  - Diarrhoea [Recovering/Resolving]
  - Weight decreased [Unknown]
  - Frustration tolerance decreased [Unknown]
  - Dyspnoea exertional [Unknown]
  - Headache [Not Recovered/Not Resolved]
  - Gastrointestinal disorder [Unknown]
  - Depression [Recovering/Resolving]
  - Abdominal discomfort [Unknown]
  - Rhinorrhoea [Unknown]
  - Productive cough [Unknown]
  - Therapy non-responder [Unknown]
  - Malaise [Unknown]
  - Therapy partial responder [Unknown]
  - Abdominal pain [Unknown]
  - Pain in jaw [Unknown]

NARRATIVE: CASE EVENT DATE: 20240101
